FAERS Safety Report 8936983 (Version 4)
Quarter: 2013Q3

REPORT INFORMATION
  Report Type: Report from Study
  Country: BR (occurrence: BR)
  Receive Date: 20121130
  Receipt Date: 20130820
  Transmission Date: 20140515
  Serious: Yes (Hospitalization, Other)
  Sender: FDA-Public Use
  Company Number: BR-ROCHE-775653

PATIENT
  Age: 59 Year
  Sex: Female
  Weight: 72 kg

DRUGS (10)
  1. RITUXIMAB [Suspect]
     Indication: RHEUMATOID ARTHRITIS
     Route: 042
  2. ACTEMRA [Suspect]
     Indication: RHEUMATOID ARTHRITIS
     Dosage: ROUTE REPORTED AS ENDOVENOUS
     Route: 042
     Dates: start: 201009, end: 201209
  3. ACTEMRA [Suspect]
     Indication: OSTEOARTHRITIS
  4. ACTEMRA [Suspect]
     Indication: FIBROMYALGIA
  5. DORMONID (BRAZIL) [Suspect]
     Indication: INSOMNIA
     Route: 065
  6. LASIX [Concomitant]
     Route: 065
  7. PANTOPRAZOLE [Concomitant]
  8. DORFLEX [Concomitant]
  9. HIDANTAL [Concomitant]
  10. TORLOS [Concomitant]

REACTIONS (13)
  - Gangrene [Recovered/Resolved]
  - Cardiovascular disorder [Recovered/Resolved]
  - Ankle fracture [Not Recovered/Not Resolved]
  - Spinal column injury [Unknown]
  - Musculoskeletal disorder [Unknown]
  - Limb deformity [Not Recovered/Not Resolved]
  - Fall [Unknown]
  - Weight decreased [Recovered/Resolved]
  - Gait disturbance [Recovered/Resolved]
  - Anaemia [Recovered/Resolved]
  - Hypertension [Not Recovered/Not Resolved]
  - Arthralgia [Not Recovered/Not Resolved]
  - Lower limb fracture [Not Recovered/Not Resolved]
